FAERS Safety Report 18227481 (Version 1)
Quarter: 2020Q3

REPORT INFORMATION
  Report Type: Spontaneous
  Country: BE (occurrence: BE)
  Receive Date: 20200903
  Receipt Date: 20200903
  Transmission Date: 20201103
  Serious: Yes (Congenital Anomaly)
  Sender: FDA-Public Use
  Company Number: BE-TEVA-2010-16567

PATIENT
  Sex: Male
  Weight: .28 kg

DRUGS (7)
  1. METHOTREXATE. [Concomitant]
     Active Substance: METHOTREXATE
     Route: 064
  2. FLUOROURACIL (WATSON LABORATORIES) [Suspect]
     Active Substance: FLUOROURACIL SODIUM
     Indication: BREAST CANCER
  3. CYCLOPHOSPHAMIDE. [Suspect]
     Active Substance: CYCLOPHOSPHAMIDE
     Indication: BREAST CANCER
  4. EPIRUBICIN HYDROCHLORIDE (WATSON LABORATORIES) [Suspect]
     Active Substance: EPIRUBICIN HYDROCHLORIDE
     Indication: CHEMOTHERAPY
     Route: 064
  5. FLUOROURACIL (WATSON LABORATORIES) [Suspect]
     Active Substance: FLUOROURACIL SODIUM
     Indication: CHEMOTHERAPY
     Route: 064
  6. EPIRUBICIN HYDROCHLORIDE (WATSON LABORATORIES) [Suspect]
     Active Substance: EPIRUBICIN HYDROCHLORIDE
     Indication: BREAST CANCER
  7. CYCLOPHOSPHAMIDE. [Suspect]
     Active Substance: CYCLOPHOSPHAMIDE
     Indication: CHEMOTHERAPY
     Route: 064

REACTIONS (7)
  - Micrognathia [Not Recovered/Not Resolved]
  - Clinodactyly [Not Recovered/Not Resolved]
  - Phalangeal agenesis [Not Recovered/Not Resolved]
  - Foot deformity [Not Recovered/Not Resolved]
  - Syndactyly [Not Recovered/Not Resolved]
  - Macrodactyly [Not Recovered/Not Resolved]
  - Foetal exposure during pregnancy [Unknown]
